FAERS Safety Report 15898076 (Version 1)
Quarter: 2019Q1

REPORT INFORMATION
  Report Type: Spontaneous
  Country: AT (occurrence: AT)
  Receive Date: 20190201
  Receipt Date: 20190201
  Transmission Date: 20190417
  Serious: Yes (Other)
  Sender: FDA-Public Use
  Company Number: AT-TEVA-2019-AT-1006300

PATIENT
  Age: 25 Year
  Sex: Female

DRUGS (4)
  1. AKTIFERRIN TROPFEN [Concomitant]
     Dosage: 20 GTT DAILY; 20 GTT - 0 - 0
     Route: 065
     Dates: start: 2015
  2. STESOLID 10 MG REKTALTUBEN [Suspect]
     Active Substance: DIAZEPAM
     Indication: EPILEPSY
     Route: 065
     Dates: start: 201811
  3. STESOLID 10 MG REKTALTUBEN [Suspect]
     Active Substance: DIAZEPAM
     Route: 065
     Dates: start: 2004
  4. TRUXAL 15 MG [Concomitant]
     Dosage: 1 DOSAGE FORMS DAILY; 0-0-1
     Route: 065
     Dates: start: 1999

REACTIONS (5)
  - Product quality issue [Unknown]
  - Seizure [Recovered/Resolved]
  - Muscle spasticity [Recovered/Resolved]
  - Drug ineffective [Unknown]
  - Product odour abnormal [Unknown]

NARRATIVE: CASE EVENT DATE: 201811
